FAERS Safety Report 25734955 (Version 1)
Quarter: 2025Q3

REPORT INFORMATION
  Report Type: Report from Study
  Country: IL (occurrence: IL)
  Receive Date: 20250828
  Receipt Date: 20250828
  Transmission Date: 20251021
  Serious: Yes (Hospitalization, Other)
  Sender: ABBVIE
  Company Number: IL-ABBVIE-6432401

PATIENT
  Age: 67 Year
  Sex: Female

DRUGS (1)
  1. SKYRIZI [Suspect]
     Active Substance: RISANKIZUMAB-RZAA
     Indication: Crohn^s disease
     Dosage: S.N.- 131581710656, DATE OF START OF TREATMENT ON OBI SKILLED CHOICE- 15/07/24
     Route: 058
     Dates: start: 20240401

REACTIONS (2)
  - Thyroid mass [Recovered/Resolved]
  - Device issue [Unknown]
